FAERS Safety Report 5465641-1 (Version None)
Quarter: 2007Q3

REPORT INFORMATION
  Report Type: 
  Country: None (occurrence: None)
  Receive Date: 20070924
  Receipt Date: 20070914
  Transmission Date: 20080115
  Serious: Yes (Other)
  Sender: FDA-Public Use
  Company Number: JP-ASTRAZENECA-2007AP04452

PATIENT
  Age: 29239 Day
  Sex: Male

DRUGS (9)
  1. CASODEX [Suspect]
     Indication: PROSTATE CANCER
     Route: 048
     Dates: start: 20060203, end: 20060217
  2. CASODEX [Suspect]
     Route: 048
     Dates: start: 20060721, end: 20070607
  3. LEUPROLIDE ACETATE [Concomitant]
     Indication: PROSTATE CANCER
     Route: 058
     Dates: start: 20060203
  4. NORVASC [Concomitant]
     Indication: HYPERTENSION
     Route: 048
  5. MICARDIS [Concomitant]
     Indication: HYPERTENSION
     Route: 048
  6. THYRADIN [Concomitant]
     Indication: HYPOTHYROIDISM
     Route: 048
  7. ALOSENN [Concomitant]
     Route: 048
  8. JUVELA N [Concomitant]
     Route: 048
  9. PRONON [Concomitant]
     Route: 048

REACTIONS (1)
  - BRADYCARDIA [None]
